FAERS Safety Report 16260424 (Version 1)
Quarter: 2019Q2

REPORT INFORMATION
  Report Type: Spontaneous
  Country: US (occurrence: US)
  Receive Date: 20190430
  Receipt Date: 20190430
  Transmission Date: 20190711
  Serious: Yes (Hospitalization)
  Sender: FDA-Public Use
  Company Number: None

PATIENT
  Age: 84 Year
  Sex: Female

DRUGS (8)
  1. OLMESA MEDOX TABLET 40MG [Concomitant]
     Dates: start: 20190207
  2. OMEPRAZOLE CAPSULE 20MG [Concomitant]
     Dates: start: 20190207
  3. XELJANZ [Suspect]
     Active Substance: TOFACITINIB CITRATE
     Indication: RHEUMATOID ARTHRITIS
     Route: 048
     Dates: start: 20190307
  4. HYDROMORPHONE TABLETS 2MG [Concomitant]
     Dates: start: 20190417, end: 20190420
  5. AMLODIPINE [Concomitant]
     Active Substance: AMLODIPINE BESYLATE
     Dates: start: 20190318
  6. DICLOFENAC GEL 1% [Concomitant]
     Active Substance: DICLOFENAC
     Dates: start: 20190318
  7. ALENDRONATE TABLET 70MG [Concomitant]
     Dates: start: 20190226, end: 20190327
  8. FOLIC ACID TABLET 1000MCG [Concomitant]
     Dates: start: 20190408

REACTIONS (2)
  - Drug ineffective [None]
  - Rheumatoid arthritis [None]

NARRATIVE: CASE EVENT DATE: 20190307
